FAERS Safety Report 6938837-7 (Version None)
Quarter: 2010Q3

REPORT INFORMATION
  Report Type: 
  Country: None (occurrence: None)
  Receive Date: 20100824
  Receipt Date: 20100812
  Transmission Date: 20110219
  Serious: Yes (Other)
  Sender: FDA-Public Use
  Company Number: CL-PFIZER INC-2010000459

PATIENT
  Sex: Female

DRUGS (1)
  1. DEPO-PRODASONE [Suspect]
     Dosage: 150 MG, UNK
     Dates: start: 20091016

REACTIONS (6)
  - ABDOMINAL PAIN UPPER [None]
  - ACNE [None]
  - ALOPECIA [None]
  - DIZZINESS [None]
  - HEADACHE [None]
  - VISION BLURRED [None]
